FAERS Safety Report 13260476 (Version 2)
Quarter: 2017Q1

REPORT INFORMATION
  Report Type: Report from Study
  Country: US (occurrence: US)
  Receive Date: 20170222
  Receipt Date: 20170329
  Transmission Date: 20170428
  Serious: Yes (Other)
  Sender: FDA-Public Use
  Company Number: US-CORCEPT THERAPEUTICS INC.-US-2017CRT000126

PATIENT

DRUGS (4)
  1. KORLYM [Suspect]
     Active Substance: MIFEPRISTONE
     Indication: ECTOPIC ACTH SYNDROME
     Dosage: 300 MG, QD
     Route: 048
     Dates: start: 20160329, end: 201604
  2. KORLYM [Suspect]
     Active Substance: MIFEPRISTONE
     Indication: DIABETES MELLITUS
     Dosage: 600 MG, QD
     Route: 048
     Dates: start: 201604
  3. KORLYM [Suspect]
     Active Substance: MIFEPRISTONE
     Indication: ESSENTIAL HYPERTENSION
  4. KORLYM [Suspect]
     Active Substance: MIFEPRISTONE
     Indication: HEPATIC STEATOSIS

REACTIONS (4)
  - Adrenal neoplasm [Not Recovered/Not Resolved]
  - Oestradiol increased [Unknown]
  - Gynaecomastia [Unknown]
  - Blood testosterone increased [Unknown]

NARRATIVE: CASE EVENT DATE: 20170213
